FAERS Safety Report 15516098 (Version 3)
Quarter: 2018Q4

REPORT INFORMATION
  Report Type: Spontaneous
  Country: US (occurrence: US)
  Receive Date: 20181017
  Receipt Date: 20181105
  Transmission Date: 20190205
  Serious: Yes (Hospitalization, Other)
  Sender: FDA-Public Use
  Company Number: US-PFIZER INC-2018413876

PATIENT
  Sex: Female

DRUGS (3)
  1. NORVASC [Suspect]
     Active Substance: AMLODIPINE BESYLATE
     Indication: VASCULAR INSUFFICIENCY
     Dosage: 2.5 MG, 1X/DAY
     Route: 048
     Dates: start: 201804
  2. NORVASC [Suspect]
     Active Substance: AMLODIPINE BESYLATE
     Indication: SKIN DISCOLOURATION
  3. NORVASC [Suspect]
     Active Substance: AMLODIPINE BESYLATE
     Indication: PERIPHERAL SWELLING

REACTIONS (3)
  - Drug effective for unapproved indication [Unknown]
  - Therapeutic response unexpected [Unknown]
  - Gastrointestinal haemorrhage [Unknown]

NARRATIVE: CASE EVENT DATE: 20180423
